FAERS Safety Report 19120057 (Version 1)
Quarter: 2021Q2

REPORT INFORMATION
  Report Type: Report from Study
  Country: None (occurrence: DO)
  Receive Date: 20210412
  Receipt Date: 20210412
  Transmission Date: 20210717
  Serious: Yes (Hospitalization)
  Sender: FDA-Public Use
  Company Number: DO-ABBVIE-21K-279-3855093-00

PATIENT
  Age: 75 Year
  Sex: Female
  Weight: 56 kg

DRUGS (1)
  1. HUMIRA [Suspect]
     Active Substance: ADALIMUMAB
     Indication: RHEUMATOID ARTHRITIS
     Route: 058
     Dates: start: 20140221

REACTIONS (2)
  - COVID-19 [Recovered/Resolved]
  - Asphyxia [Recovered/Resolved]

NARRATIVE: CASE EVENT DATE: 202102
